FAERS Safety Report 6765250-8 (Version None)
Quarter: 2010Q2

REPORT INFORMATION
  Report Type: 
  Country: None (occurrence: None)
  Receive Date: 20100611
  Receipt Date: 20100420
  Transmission Date: 20101027
  Serious: Yes (Hospitalization, Other)
  Sender: FDA-Public Use
  Company Number: US-BAYER-201012372NA

PATIENT
  Age: 16 Year
  Sex: Female
  Weight: 95 kg

DRUGS (18)
  1. YAZ [Suspect]
     Indication: POLYCYSTIC OVARIES
     Route: 048
     Dates: start: 20070625, end: 20090601
  2. NSAIDS [Concomitant]
     Dates: start: 20030101
  3. GLUCOPHAG [Concomitant]
     Dates: start: 20070101, end: 20090601
  4. METFORMIN [Concomitant]
  5. AZITHROMYCIN [Concomitant]
  6. AMDRY [Concomitant]
  7. HISTA-VENT [Concomitant]
  8. PREVACID [Concomitant]
  9. DRYSOL [Concomitant]
  10. SYMBICORT [Concomitant]
  11. CHLORDIAZEPOXIDE [Concomitant]
  12. DICYCLOMIN [Concomitant]
  13. ACTICIN [Concomitant]
  14. OMEPRAZOLE [Concomitant]
  15. FLUOCHLORIDE [Concomitant]
  16. NORETHINDRONE AND ETHINYL ESTRADIOL [Concomitant]
  17. CHLORHEXIDINE GLUCONATE [Concomitant]
  18. DOXYCYCLINE [Concomitant]
     Dates: start: 20070101, end: 20081231

REACTIONS (10)
  - ABDOMINAL PAIN [None]
  - EROSIVE OESOPHAGITIS [None]
  - GALLBLADDER NON-FUNCTIONING [None]
  - GASTRODUODENITIS [None]
  - GASTROINTESTINAL DISORDER [None]
  - HAEMORRHOIDS [None]
  - HIATUS HERNIA [None]
  - ILEITIS [None]
  - NAUSEA [None]
  - PAIN [None]
